FAERS Safety Report 10128556 (Version 1)
Quarter: 2014Q2

REPORT INFORMATION
  Report Type: Spontaneous
  Country: DE (occurrence: DE)
  Receive Date: 20140428
  Receipt Date: 20140428
  Transmission Date: 20141212
  Serious: Yes (Other)
  Sender: FDA-Public Use
  Company Number: DE-JNJFOC-20140413974

PATIENT
  Age: 63 Year
  Sex: Female

DRUGS (2)
  1. XARELTO [Suspect]
     Indication: EMBOLISM VENOUS
     Route: 048
  2. XARELTO [Suspect]
     Indication: DEEP VEIN THROMBOSIS
     Route: 048

REACTIONS (8)
  - Renal pain [Unknown]
  - Blood urine present [Unknown]
  - Hypotension [Unknown]
  - Hyperhidrosis [Unknown]
  - Fatigue [Unknown]
  - Heart rate increased [Unknown]
  - Dizziness [Unknown]
  - Fatigue [Unknown]
